FAERS Safety Report 6096620-1 (Version None)
Quarter: 2009Q1

REPORT INFORMATION
  Report Type: 
  Country: None (occurrence: None)
  Receive Date: 20090227
  Receipt Date: 20090219
  Transmission Date: 20090719
  Serious: Yes (Other)
  Sender: FDA-Public Use
  Company Number: FR-NOVOPROD-284400

PATIENT
  Age: 13 Year
  Sex: Male

DRUGS (1)
  1. NOVOSEVEN [Suspect]

REACTIONS (1)
  - PERIPHERAL ISCHAEMIA [None]
